FAERS Safety Report 9061849 (Version 2)
Quarter: 2013Q1

REPORT INFORMATION
  Report Type: Spontaneous
  Country: US (occurrence: US)
  Receive Date: 20130128
  Receipt Date: 20130311
  Transmission Date: 20140127
  Serious: No
  Sender: FDA-Public Use
  Company Number: US-TEVA-382067USA

PATIENT
  Age: 39 Year
  Sex: Female

DRUGS (1)
  1. NUVIGIL [Suspect]

REACTIONS (1)
  - Drug ineffective [Recovered/Resolved]
